FAERS Safety Report 4825398-1 (Version None)
Quarter: 2005Q4

REPORT INFORMATION
  Report Type: 
  Country: None (occurrence: None)
  Receive Date: 20051110
  Receipt Date: 20051110
  Transmission Date: 20060501
  Serious: Yes (Other)
  Sender: FDA-Public Use
  Company Number: None

PATIENT
  Sex: Female
  Weight: 87.5442 kg

DRUGS (1)
  1. CLARITIN [Suspect]
     Indication: SINUSITIS
     Dosage: 10 MG QD
     Dates: start: 20050601

REACTIONS (1)
  - HEADACHE [None]
